FAERS Safety Report 23568912 (Version 1)
Quarter: 2024Q1

REPORT INFORMATION
  Report Type: Report from Study
  Country: US (occurrence: US)
  Receive Date: 20240227
  Receipt Date: 20240227
  Transmission Date: 20240409
  Serious: No
  Sender: FDA-Public Use
  Company Number: US-ORG100014127-2023000717

PATIENT
  Age: 90 Year
  Sex: Male

DRUGS (12)
  1. METOPIRONE [Suspect]
     Active Substance: METYRAPONE
     Indication: Adrenal disorder
     Dosage: 1 CAPSULE BY MOUTH 3 TIMES DAILY
     Dates: start: 20230404, end: 2023
  2. amlodipine tablet 10mg [Concomitant]
     Indication: Product used for unknown indication
  3. aspirin low tab 81mg [Concomitant]
     Indication: Product used for unknown indication
  4. Bumetanide tab 0.5mg [Concomitant]
     Indication: Product used for unknown indication
  5. Famotidine tab 40mg [Concomitant]
     Indication: Product used for unknown indication
  6. Levothyroxine tab 75mcg [Concomitant]
     Indication: Product used for unknown indication
  7. Losartan pot tab 100mg [Concomitant]
     Indication: Product used for unknown indication
  8. Metformin tab 1000mg [Concomitant]
     Indication: Product used for unknown indication
  9. Metoprol suc tab 50mg [Concomitant]
     Indication: Product used for unknown indication
  10. Novolog inj flexpen [Concomitant]
     Indication: Product used for unknown indication
  11. Pantoprazole tab 40mg [Concomitant]
     Indication: Product used for unknown indication
  12. SIMVASTATIN [Concomitant]
     Active Substance: SIMVASTATIN
     Indication: Product used for unknown indication

REACTIONS (2)
  - Adverse event [Unknown]
  - Off label use [Recovered/Resolved]

NARRATIVE: CASE EVENT DATE: 20230101
